FAERS Safety Report 5818528-6 (Version None)
Quarter: 2008Q3

REPORT INFORMATION
  Report Type: 
  Country: None (occurrence: None)
  Receive Date: 20080717
  Receipt Date: 20080701
  Transmission Date: 20090109
  Serious: Yes (Other)
  Sender: FDA-Public Use
  Company Number: ISPH-2008-0143

PATIENT

DRUGS (1)
  1. AZASITE [Suspect]
     Indication: ANTIBIOTIC PROPHYLAXIS
     Dosage: 1 GTT, QD; OPTHALMIC
     Route: 047

REACTIONS (2)
  - ENDOPHTHALMITIS [None]
  - STAPHYLOCOCCAL INFECTION [None]
